FAERS Safety Report 8674465 (Version 6)
Quarter: 2013Q4

REPORT INFORMATION
  Report Type: Report from Study
  Country: CA (occurrence: CA)
  Receive Date: 20120720
  Receipt Date: 20131025
  Transmission Date: 20140711
  Serious: Yes (Other)
  Sender: FDA-Public Use
  Company Number: CA-ROCHE-1088046

PATIENT
  Age: 38 Year
  Sex: Female
  Weight: 108 kg

DRUGS (22)
  1. ACTEMRA [Suspect]
     Indication: RHEUMATOID ARTHRITIS
     Route: 042
     Dates: start: 20120405
  2. ACTEMRA [Suspect]
     Route: 065
     Dates: start: 20120530
  3. ACTEMRA [Suspect]
     Route: 065
     Dates: start: 20120713
  4. ACTEMRA [Suspect]
     Route: 065
     Dates: start: 20120808
  5. ACTEMRA [Suspect]
     Route: 065
     Dates: start: 20120904
  6. ACTEMRA [Suspect]
     Route: 065
     Dates: start: 20121001
  7. ACTEMRA [Suspect]
     Route: 065
     Dates: start: 20121120
  8. ACTEMRA [Suspect]
     Route: 065
     Dates: start: 20121228
  9. ACTEMRA [Suspect]
     Route: 065
     Dates: start: 20130408
  10. ACTEMRA [Suspect]
     Route: 065
     Dates: start: 20130507
  11. ACTEMRA [Suspect]
     Route: 065
     Dates: start: 20130702
  12. METHOTREXATE [Concomitant]
     Indication: RHEUMATOID ARTHRITIS
     Route: 048
     Dates: start: 2007
  13. FOLIC ACID [Concomitant]
     Indication: MEDICAL DIET
     Route: 048
     Dates: start: 2007
  14. VITAMIN B12 [Concomitant]
     Indication: VITAMIN SUPPLEMENTATION
     Route: 048
     Dates: start: 2010
  15. ATASOL (PARACETAMOL) [Concomitant]
     Indication: ARTHRALGIA
     Route: 048
     Dates: start: 2009
  16. CARBAMAZEPINE [Concomitant]
     Indication: EPILEPSY
     Route: 048
  17. PAROXIL [Concomitant]
     Indication: DEPRESSION
     Route: 048
  18. OMEPRAZOLE [Concomitant]
     Indication: ABDOMINAL DISCOMFORT
     Route: 048
  19. NASOCORT [Concomitant]
     Indication: HYPERSENSITIVITY
     Route: 045
  20. LORAZEPAM [Concomitant]
     Indication: ANXIETY
     Route: 048
  21. CETRIZINE [Concomitant]
     Indication: HYPERSENSITIVITY
     Route: 048
  22. LASIX [Concomitant]
     Route: 048

REACTIONS (10)
  - International normalised ratio increased [Not Recovered/Not Resolved]
  - Abnormal clotting factor [Unknown]
  - Systemic lupus erythematosus [Not Recovered/Not Resolved]
  - Factor VII deficiency [Not Recovered/Not Resolved]
  - Contusion [Unknown]
  - Rash macular [Not Recovered/Not Resolved]
  - Skin discolouration [Not Recovered/Not Resolved]
  - Weight decreased [Unknown]
  - Rash [Unknown]
  - Contusion [Unknown]
